FAERS Safety Report 7044706-7 (Version None)
Quarter: 2010Q4

REPORT INFORMATION
  Report Type: 
  Country: None (occurrence: None)
  Receive Date: 20101014
  Receipt Date: 20101007
  Transmission Date: 20110411
  Serious: Yes (Death)
  Sender: FDA-Public Use
  Company Number: BR-GENZYME-FABR-1001556

PATIENT
  Sex: Male
  Weight: 54.5 kg

DRUGS (8)
  1. FABRAZYME [Suspect]
     Indication: FABRY'S DISEASE
     Dosage: 35 MG, Q2W
     Route: 042
     Dates: start: 20100731
  2. FABRAZYME [Suspect]
     Dosage: 70 MG, Q2W
     Route: 042
     Dates: start: 20021105, end: 20100730
  3. RENAGEL [Concomitant]
     Indication: PRODUCT USED FOR UNKNOWN INDICATION
  4. EPOGEN [Concomitant]
     Indication: PRODUCT USED FOR UNKNOWN INDICATION
  5. LOSARTAN [Concomitant]
     Indication: PRODUCT USED FOR UNKNOWN INDICATION
  6. AMLODIPINE [Concomitant]
     Indication: PRODUCT USED FOR UNKNOWN INDICATION
  7. ASPIRIN [Concomitant]
     Indication: PRODUCT USED FOR UNKNOWN INDICATION
  8. CARVEDILOL [Concomitant]
     Indication: PRODUCT USED FOR UNKNOWN INDICATION

REACTIONS (1)
  - HAEMORRHAGIC STROKE [None]
